FAERS Safety Report 4831888-8 (Version None)
Quarter: 2005Q4

REPORT INFORMATION
  Report Type: 
  Country: None (occurrence: None)
  Receive Date: 20051118
  Receipt Date: 20050919
  Transmission Date: 20060501
  Serious: Yes (Other)
  Sender: FDA-Public Use
  Company Number: ES-NOVOPROD-247183

PATIENT
  Age: 64 Year
  Sex: Male

DRUGS (4)
  1. MIXTARD 30 INNOLET [Suspect]
     Indication: INSULIN-REQUIRING TYPE II DIABETES MELLITUS
     Dosage: 14 IU, QD
     Route: 058
  2. ENALAPRIL [Concomitant]
     Dosage: 5 MG, QD
  3. ACETYLSALISYLSYRE [Concomitant]
     Dosage: 100 MG, QD
  4. INSULATARD INNOLET [Concomitant]
     Dosage: 16 IU, MORNING

REACTIONS (6)
  - BLISTER [None]
  - BLOOD GLUCOSE INCREASED [None]
  - FEELING COLD [None]
  - HYPERHIDROSIS [None]
  - PALLOR [None]
  - TREMOR [None]
